FAERS Safety Report 9434606 (Version 2)
Quarter: 2013Q3

REPORT INFORMATION
  Report Type: Spontaneous
  Country: US (occurrence: US)
  Receive Date: 20130801
  Receipt Date: 20130909
  Transmission Date: 20140515
  Serious: No
  Sender: FDA-Public Use
  Company Number: US-PFIZER INC-2013223585

PATIENT
  Age: 53 Year
  Sex: Female

DRUGS (3)
  1. LYRICA [Suspect]
     Indication: NEURALGIA
     Dosage: 300 MG, 3X/DAY
     Route: 048
  2. PREMARIN [Suspect]
     Dosage: 1.25 MG, 1X/DAY
     Route: 048
  3. SPIRIVA [Suspect]
     Dosage: 18 UG, 1 DRY INHALATION DAILY

REACTIONS (3)
  - Pain in extremity [Unknown]
  - Osteoporosis [Unknown]
  - Foot fracture [Unknown]
